FAERS Safety Report 17117675 (Version 2)
Quarter: 2025Q3

REPORT INFORMATION
  Report Type: Spontaneous
  Country: EU (occurrence: EU)
  Receive Date: 20191205
  Receipt Date: 20250829
  Transmission Date: 20251021
  Serious: Yes (Death, Hospitalization, Other)
  Sender: MYLAN
  Company Number: EU-NOVPHSZ-PHHY2019NL167636

PATIENT
  Age: 16 Year
  Sex: Female

DRUGS (5)
  1. LEVETIRACETAM [Suspect]
     Active Substance: LEVETIRACETAM
     Indication: Epilepsy
  2. NADROPARIN CALCIUM [Concomitant]
     Active Substance: NADROPARIN CALCIUM
     Indication: Dyspnoea
  3. DABRAFENIB [Concomitant]
     Active Substance: DABRAFENIB
     Indication: Metastases to central nervous system
  4. TRAMETINIB [Concomitant]
     Active Substance: TRAMETINIB
     Indication: Metastases to central nervous system
  5. PEMBROLIZUMAB [Concomitant]
     Active Substance: PEMBROLIZUMAB
     Indication: Metastases to central nervous system

REACTIONS (3)
  - Vision blurred [Fatal]
  - Headache [Fatal]
  - Seizure [Fatal]

NARRATIVE: CASE EVENT DATE: 20160501
